FAERS Safety Report 7981568-5 (Version None)
Quarter: 2011Q4

REPORT INFORMATION
  Report Type: 
  Country: None (occurrence: None)
  Receive Date: 20111215
  Receipt Date: 20111021
  Transmission Date: 20120403
  Serious: Yes (Congenital Anomaly)
  Sender: FDA-Public Use
  Company Number: GB-UCBSA-044123

PATIENT
  Sex: Female
  Weight: 2.7 kg

DRUGS (2)
  1. KEPPRA [Suspect]
     Indication: EPILEPSY
     Route: 064
  2. LAMOTRIGINE [Suspect]
     Indication: EPILEPSY
     Route: 064

REACTIONS (2)
  - PYLORIC STENOSIS [None]
  - FOETAL EXPOSURE DURING PREGNANCY [None]
